FAERS Safety Report 14953125 (Version 2)
Quarter: 2020Q1

REPORT INFORMATION
  Report Type: Spontaneous
  Country: CH (occurrence: CH)
  Receive Date: 20180530
  Receipt Date: 20200207
  Transmission Date: 20200409
  Serious: Yes (Death, Other)
  Sender: FDA-Public Use
  Company Number: CH-ASTRAZENECA-2018SE67728

PATIENT
  Age: 78 Year
  Sex: Male

DRUGS (16)
  1. CALCIMAGON D3 [Concomitant]
     Active Substance: CALCIUM\CHOLECALCIFEROL
     Dates: start: 2016
  2. SAROTEN RETARD [Suspect]
     Active Substance: AMITRIPTYLINE
     Route: 048
     Dates: start: 20180321
  3. NUTROF TOTAL [Concomitant]
     Dates: start: 2013
  4. CO AMOXICILLIN [Concomitant]
     Active Substance: AMOXICILLIN\CLAVULANATE POTASSIUM
     Dates: start: 20180409, end: 20180417
  5. XANAX [Suspect]
     Active Substance: ALPRAZOLAM
     Route: 048
     Dates: start: 2013
  6. XANAX [Suspect]
     Active Substance: ALPRAZOLAM
     Route: 048
     Dates: start: 2013
  7. LACRYCON [Concomitant]
     Active Substance: HYALURONATE SODIUM
  8. NEXIUM [Suspect]
     Active Substance: ESOMEPRAZOLE MAGNESIUM
     Route: 048
     Dates: start: 2013, end: 201804
  9. DAFALGAN [Suspect]
     Active Substance: ACETAMINOPHEN
     Dosage: 3000MG,UNK
     Route: 048
     Dates: start: 2008
  10. ZOLPIDEM [Suspect]
     Active Substance: ZOLPIDEM TARTRATE
     Dosage: 5.0MG UNKNOWN
     Route: 048
  11. LAXOBERON [Suspect]
     Active Substance: SODIUM PICOSULFATE
     Dosage: 5 MG 1X/DAY PO AS NEEDED
     Route: 048
     Dates: start: 2013
  12. FLATULEX [Concomitant]
     Active Substance: ACTIVATED CHARCOAL\DIMETHICONE
     Dates: start: 2016
  13. OXYNORM [Concomitant]
     Active Substance: OXYCODONE HYDROCHLORIDE
     Dates: start: 2013, end: 201802
  14. DAFALGAN [Suspect]
     Active Substance: ACETAMINOPHEN
     Dosage: 1000 MG, THREE TIMES A DAY +1000 MG AS NEEDED
     Route: 048
     Dates: start: 2008
  15. MYDOCALM [Concomitant]
     Dates: start: 2013, end: 201804
  16. MYCOSTATINE [Concomitant]
     Active Substance: NYSTATIN
     Dates: start: 201804

REACTIONS (1)
  - Eosinophilia [Not Recovered/Not Resolved]

NARRATIVE: CASE EVENT DATE: 2018
